FAERS Safety Report 5967845-8 (Version None)
Quarter: 2008Q4

REPORT INFORMATION
  Report Type: 
  Country: None (occurrence: None)
  Receive Date: 20081126
  Receipt Date: 20081125
  Transmission Date: 20090506
  Serious: Yes (Hospitalization, Other)
  Sender: FDA-Public Use
  Company Number: US-BAYER-200822865NA

PATIENT

DRUGS (1)
  1. SORAFENIB [Suspect]
     Indication: RENAL CELL CARCINOMA
     Route: 048

REACTIONS (8)
  - ABDOMINAL PAIN [None]
  - ABSCESS DRAINAGE [None]
  - COLOSTOMY [None]
  - ENTEROCUTANEOUS FISTULA [None]
  - GASTROINTESTINAL DISORDER [None]
  - NAUSEA [None]
  - SALPINGO-OOPHORECTOMY UNILATERAL [None]
  - VOMITING [None]
